FAERS Safety Report 7932179-9 (Version None)
Quarter: 2011Q4

REPORT INFORMATION
  Report Type: 
  Country: None (occurrence: None)
  Receive Date: 20111121
  Receipt Date: 20111114
  Transmission Date: 20120403
  Serious: Yes (Hospitalization)
  Sender: FDA-Public Use
  Company Number: NZ-B.I. PHARMACEUTICALS,INC./RIDGEFIELD-2011-AU-02019AU

PATIENT
  Sex: Male

DRUGS (6)
  1. FUROSEMIDE [Concomitant]
     Dates: start: 20090101
  2. DOXAZOSIN MESYLATE [Concomitant]
     Dates: start: 20090101
  3. METOPROLOL TARTRATE [Concomitant]
     Dates: start: 20090101
  4. SPAN K [Concomitant]
     Dates: start: 20090101
  5. ACCUPRIL [Concomitant]
     Dates: start: 20090101
  6. PRADAXA [Suspect]
     Indication: ATRIAL FIBRILLATION
     Dosage: 220 MG
     Dates: start: 20110705, end: 20111005

REACTIONS (2)
  - HAEMATURIA [None]
  - URINARY RETENTION [None]
